FAERS Safety Report 9869045 (Version 2)
Quarter: 2014Q1

REPORT INFORMATION
  Report Type: Report from Study
  Country: ES (occurrence: ES)
  Receive Date: 20140205
  Receipt Date: 20140205
  Transmission Date: 20141002
  Serious: Yes (Hospitalization)
  Sender: FDA-Public Use
  Company Number: ES-ROCHE-1277274

PATIENT
  Age: 66 Year
  Sex: Female
  Weight: 57 kg

DRUGS (4)
  1. PEG-INTERFERON ALFA 2A [Suspect]
     Indication: CHRONIC HEPATITIS C
     Dosage: DURATION 41 WEEKS, TTD
     Route: 058
     Dates: start: 20120928
  2. RIBAVIRIN [Interacting]
     Indication: CHRONIC HEPATITIS C
     Dosage: DURATION: 41 WEEKS, TTD
     Route: 048
     Dates: start: 20120928
  3. BOCEPREVIR [Interacting]
     Indication: CHRONIC HEPATITIS C
     Dosage: DURATION 37 WEEKS, TTD
     Route: 048
     Dates: start: 20121026
  4. LEVOFLOXACIN [Concomitant]
     Dosage: TOTAL DAILY DOSE 200
     Route: 042
     Dates: start: 20130716, end: 20130726

REACTIONS (2)
  - Pneumonia [Recovered/Resolved]
  - Drug interaction [Unknown]
